FAERS Safety Report 25388527 (Version 1)
Quarter: 2025Q2

REPORT INFORMATION
  Report Type: Report from Study
  Country: TR (occurrence: TR)
  Receive Date: 20250603
  Receipt Date: 20250603
  Transmission Date: 20250717
  Serious: Yes (Other)
  Sender: JOHNSON AND JOHNSON
  Company Number: TR-JNJFOC-20250532328

PATIENT

DRUGS (7)
  1. INFLIXIMAB [Suspect]
     Active Substance: INFLIXIMAB
     Indication: Spondylitis
     Route: 041
  2. GOLIMUMAB [Suspect]
     Active Substance: GOLIMUMAB
     Indication: Spondylitis
     Route: 058
  3. STELARA [Suspect]
     Active Substance: USTEKINUMAB
     Indication: Spondylitis
     Route: 058
  4. ADALIMUMAB [Suspect]
     Active Substance: ADALIMUMAB
     Indication: Spondylitis
     Route: 065
  5. ETANERCEPT [Suspect]
     Active Substance: ETANERCEPT
     Indication: Spondylitis
     Route: 065
  6. CERTOLIZUMAB [Suspect]
     Active Substance: CERTOLIZUMAB
     Indication: Spondylitis
     Route: 065
  7. SECUKINUMAB [Suspect]
     Active Substance: SECUKINUMAB
     Indication: Spondylitis
     Route: 065

REACTIONS (25)
  - Uveitis [Unknown]
  - Deafness [Unknown]
  - Hepatitis [Unknown]
  - Neoplasm malignant [Unknown]
  - Tuberculosis [Unknown]
  - Systemic lupus erythematosus [Unknown]
  - Leukopenia [Unknown]
  - Thrombocytopenia [Unknown]
  - Gastrointestinal disorder [Unknown]
  - Raynaud^s phenomenon [Unknown]
  - Cardiovascular disorder [Unknown]
  - Nervous system disorder [Unknown]
  - Liver function test abnormal [Unknown]
  - Dyspnoea [Unknown]
  - Proteinuria [Unknown]
  - Skin lesion [Unknown]
  - Sarcoidosis [Unknown]
  - Alopecia [Unknown]
  - Drug hypersensitivity [Unknown]
  - Infusion related reaction [Unknown]
  - Infection [Unknown]
  - Anaemia [Unknown]
  - Herpes zoster [Unknown]
  - Headache [Unknown]
  - Off label use [Unknown]
